FAERS Safety Report 5564291-6 (Version None)
Quarter: 2007Q4

REPORT INFORMATION
  Report Type: 
  Country: None (occurrence: None)
  Receive Date: 20071214
  Receipt Date: 20071214
  Transmission Date: 20080405
  Serious: Yes (Hospitalization)
  Sender: FDA-Public Use
  Company Number: None

PATIENT
  Age: 39 Year
  Sex: Male

DRUGS (1)
  1. FLUOXETINE [Suspect]
     Indication: POST-TRAUMATIC STRESS DISORDER
     Dosage: 5MG EVERY DAY PO
     Route: 048
     Dates: start: 20071029, end: 20071110

REACTIONS (2)
  - NO THERAPEUTIC RESPONSE [None]
  - PRIAPISM [None]
